FAERS Safety Report 15556395 (Version 1)
Quarter: 2018Q4

REPORT INFORMATION
  Report Type: Spontaneous
  Country: TR (occurrence: TR)
  Receive Date: 20181026
  Receipt Date: 20181026
  Transmission Date: 20190205
  Serious: Yes (Hospitalization, Other)
  Sender: FDA-Public Use
  Company Number: TR-IMPAX LABORATORIES, INC-2018-IPXL-03473

PATIENT
  Age: 10 Year
  Sex: Female

DRUGS (3)
  1. EPIRUBICIN HYDROCHLORIDE. [Suspect]
     Active Substance: EPIRUBICIN HYDROCHLORIDE
     Indication: NASOPHARYNGEAL CANCER
     Dosage: 540 MG/M2, UNK
     Route: 065
  2. CISPLATIN. [Suspect]
     Active Substance: CISPLATIN
     Indication: NASOPHARYNGEAL CANCER
     Dosage: 600 MG/M2, UNK
     Route: 065
  3. EPIRUBICIN HYDROCHLORIDE. [Suspect]
     Active Substance: EPIRUBICIN HYDROCHLORIDE
     Indication: PRODUCT USE IN UNAPPROVED INDICATION

REACTIONS (10)
  - Peripheral sensorimotor neuropathy [Unknown]
  - Radiation fibrosis [Unknown]
  - Febrile neutropenia [Unknown]
  - Vocal cord paralysis [Unknown]
  - Lymphoedema [Unknown]
  - Product use in unapproved indication [Unknown]
  - Respiratory distress [Unknown]
  - Product administered to patient of inappropriate age [Unknown]
  - Sepsis [Unknown]
  - Product use issue [Unknown]
